FAERS Safety Report 8570808-X (Version None)
Quarter: 2012Q3

REPORT INFORMATION
  Report Type: 
  Country: None (occurrence: None)
  Receive Date: 20120806
  Receipt Date: 20120731
  Transmission Date: 20120928
  Serious: Yes (Hospitalization)
  Sender: FDA-Public Use
  Company Number: US-AMGEN-USACT2012047680

PATIENT
  Age: 57 Year
  Sex: Male

DRUGS (2)
  1. DARBEPOETIN ALFA [Suspect]
     Indication: CARDIAC FAILURE
     Dates: start: 20111117
  2. PREDNISONE [Concomitant]
     Dosage: 20 MG, TID

REACTIONS (1)
  - HYPERGLYCAEMIA [None]
